FAERS Safety Report 23546880 (Version 2)
Quarter: 2024Q1

REPORT INFORMATION
  Report Type: Spontaneous
  Country: RO (occurrence: RO)
  Receive Date: 20240221
  Receipt Date: 20240228
  Transmission Date: 20240410
  Serious: Yes (Death, Life-Threatening, Hospitalization, Other)
  Sender: FDA-Public Use
  Company Number: None

PATIENT
  Age: 42 Year
  Sex: Male

DRUGS (4)
  1. BORTEZOMIB [Suspect]
     Active Substance: BORTEZOMIB
     Indication: Waldenstrom^s macroglobulinaemia
     Dosage: 1.3 MG/M2 CYCLICAL
  2. CYCLOPHOSPHAMIDE [Suspect]
     Active Substance: CYCLOPHOSPHAMIDE
     Indication: Waldenstrom^s macroglobulinaemia
     Dosage: 300 MG/M2 CYCLICAL
  3. RITUXIMAB [Suspect]
     Active Substance: RITUXIMAB
     Indication: Waldenstrom^s macroglobulinaemia
  4. DEXAMETHASONE [Suspect]
     Active Substance: DEXAMETHASONE
     Indication: Waldenstrom^s macroglobulinaemia
     Dosage: 40 MILLIGRAM CYCLICAL

REACTIONS (12)
  - Right ventricular failure [Fatal]
  - Cardiotoxicity [Fatal]
  - Pulmonary arterial hypertension [Fatal]
  - Pulmonary hypertension [Fatal]
  - Pulmonary embolism [Fatal]
  - Raynaud^s phenomenon [Fatal]
  - Pericardial effusion [Fatal]
  - Pulmonary arterial hypertension [Fatal]
  - Hyperviscosity syndrome [Fatal]
  - Cardiomyopathy [Fatal]
  - Left ventricular failure [Fatal]
  - Off label use [Unknown]
